FAERS Safety Report 12782159 (Version 5)
Quarter: 2016Q4

REPORT INFORMATION
  Report Type: Spontaneous
  Country: US (occurrence: US)
  Receive Date: 20160927
  Receipt Date: 20161208
  Transmission Date: 20170207
  Serious: No
  Sender: FDA-Public Use
  Company Number: US-ACTELION-A-NJ2016-142535

PATIENT
  Age: 54 Year
  Sex: Female

DRUGS (7)
  1. XARELTO [Concomitant]
     Active Substance: RIVAROXABAN
  2. UPTRAVI [Suspect]
     Active Substance: SELEXIPAG
     Indication: PULMONARY ARTERIAL HYPERTENSION
     Dosage: 800 MCG, BID
     Route: 048
     Dates: start: 20160823
  3. UPTRAVI [Suspect]
     Active Substance: SELEXIPAG
     Dosage: 1200 MCG, UNK
     Route: 048
  4. ADCIRCA [Concomitant]
     Active Substance: TADALAFIL
  5. UPTRAVI [Suspect]
     Active Substance: SELEXIPAG
     Dosage: 1000 UNK, UNK
     Route: 048
  6. LETAIRIS [Concomitant]
     Active Substance: AMBRISENTAN
  7. NORVASC [Concomitant]
     Active Substance: AMLODIPINE BESYLATE

REACTIONS (10)
  - Frequent bowel movements [Unknown]
  - Pain [Unknown]
  - Pain in jaw [Unknown]
  - Nausea [Unknown]
  - Asthenia [Unknown]
  - Defaecation urgency [Unknown]
  - Headache [Unknown]
  - Anaemia [Unknown]
  - Diarrhoea [Unknown]
  - Haematochezia [Unknown]
